FAERS Safety Report 7232349-1 (Version None)
Quarter: 2011Q1

REPORT INFORMATION
  Report Type: 
  Country: None (occurrence: None)
  Receive Date: 20110106
  Receipt Date: 20101222
  Transmission Date: 20110831
  Serious: Yes (Death, Hospitalization)
  Sender: FDA-Public Use
  Company Number: 749247

PATIENT
  Age: 73 Year
  Sex: Female
  Weight: 62 kg

DRUGS (12)
  1. RITUXIMAB [Suspect]
     Indication: RHEUMATOID ARTHRITIS
     Dosage: INTRAVENOUS; 1 G GRAM (S)
     Route: 042
     Dates: start: 20061130, end: 20061130
  2. RITUXIMAB [Suspect]
     Indication: RHEUMATOID ARTHRITIS
     Dosage: INTRAVENOUS; 1 G GRAM (S)
     Route: 042
     Dates: start: 20080422, end: 20080422
  3. RITUXIMAB [Suspect]
     Indication: RHEUMATOID ARTHRITIS
     Dosage: INTRAVENOUS; 1 G GRAM (S)
     Route: 042
     Dates: start: 20080727, end: 20090810
  4. ADCAL-D3 [Concomitant]
  5. ATENOLOL [Concomitant]
  6. ETANERCEPT [Concomitant]
  7. PREDNISOLONE [Concomitant]
  8. ALENDRONIC ACID [Concomitant]
  9. METHOTREXATE [Concomitant]
  10. GENTAMICIN SULFATE [Suspect]
  11. FOLIC ACID [Concomitant]
  12. ACETAMINOPHEN [Concomitant]

REACTIONS (30)
  - RASH [None]
  - PYREXIA [None]
  - APHASIA [None]
  - LACUNAR INFARCTION [None]
  - COLITIS [None]
  - ESCHERICHIA TEST POSITIVE [None]
  - SPLENOMEGALY [None]
  - LIVER ABSCESS [None]
  - CAECITIS [None]
  - PSEUDOMEMBRANOUS COLITIS [None]
  - CELLULITIS [None]
  - CLOSTRIDIAL INFECTION [None]
  - HIATUS HERNIA [None]
  - CONFUSIONAL STATE [None]
  - GASTROENTERITIS [None]
  - WOUND [None]
  - REFUSAL OF TREATMENT BY PATIENT [None]
  - RHEUMATOID ARTHRITIS [None]
  - CEREBROVASCULAR ACCIDENT [None]
  - VOMITING [None]
  - PSOAS ABSCESS [None]
  - PARASPINAL ABSCESS [None]
  - SPINAL OSTEOARTHRITIS [None]
  - INSOMNIA [None]
  - BACTERIAL SEPSIS [None]
  - HEPATIC LESION [None]
  - SOFT TISSUE INFECTION [None]
  - INCONTINENCE [None]
  - CONDITION AGGRAVATED [None]
  - DIVERTICULUM INTESTINAL [None]
